FAERS Safety Report 9478129 (Version 1)
Quarter: 2013Q3

REPORT INFORMATION
  Report Type: Spontaneous
  Country: FR (occurrence: FR)
  Receive Date: 20130827
  Receipt Date: 20130827
  Transmission Date: 20140515
  Serious: Yes (Disabling)
  Sender: FDA-Public Use
  Company Number: FR-ASTRAZENECA-2013SE64613

PATIENT
  Age: 54 Year
  Sex: Male

DRUGS (1)
  1. XEROQUEL [Suspect]
     Route: 048
     Dates: start: 201305, end: 201307

REACTIONS (2)
  - Hypersexuality [Unknown]
  - Headache [Unknown]
